FAERS Safety Report 5304260-4 (Version None)
Quarter: 2007Q2

REPORT INFORMATION
  Report Type: 
  Country: None (occurrence: None)
  Receive Date: 20070419
  Receipt Date: 20070419
  Transmission Date: 20071010
  Serious: Yes (Life-Threatening, Other)
  Sender: FDA-Public Use
  Company Number: None

PATIENT
  Age: 27 Year
  Sex: Female
  Weight: 84.369 kg

DRUGS (2)
  1. ZOLOFT [Suspect]
     Indication: ANXIETY
     Dosage: 200MG   2  100MG  TAB/DAY  PO
     Route: 048
     Dates: start: 20070123, end: 20070306
  2. ZOLOFT [Suspect]
     Indication: DEPRESSION
     Dosage: 200MG   2  100MG  TAB/DAY  PO
     Route: 048
     Dates: start: 20070123, end: 20070306

REACTIONS (4)
  - DEPRESSION [None]
  - FEELING ABNORMAL [None]
  - HYPERSOMNIA [None]
  - THERAPEUTIC RESPONSE UNEXPECTED WITH DRUG SUBSTITUTION [None]
